FAERS Safety Report 5359486-0 (Version None)
Quarter: 2007Q2

REPORT INFORMATION
  Report Type: 
  Country: None (occurrence: None)
  Receive Date: 20070615
  Receipt Date: 20070605
  Transmission Date: 20071010
  Serious: Yes (Other)
  Sender: FDA-Public Use
  Company Number: FR-MERCK-0706FRA00043

PATIENT
  Age: 62 Year

DRUGS (1)
  1. PRIMAXIN [Suspect]
     Indication: PULMONARY FUNCTION TEST DECREASED
     Route: 041

REACTIONS (1)
  - DRUG INEFFECTIVE [None]
